FAERS Safety Report 10890917 (Version 1)
Quarter: 2015Q1

REPORT INFORMATION
  Report Type: Report from Study
  Country: JP (occurrence: JP)
  Receive Date: 20150305
  Receipt Date: 20150305
  Transmission Date: 20150721
  Serious: Yes (Death)
  Sender: FDA-Public Use
  Company Number: JP-ASTRAZENECA-2013SE33236

PATIENT
  Age: 75 Year
  Sex: Female

DRUGS (47)
  1. NOVORAPID [Concomitant]
     Active Substance: INSULIN ASPART
     Indication: DIABETES MELLITUS
     Route: 065
     Dates: start: 20120703, end: 20130129
  2. DEPAS [Concomitant]
     Active Substance: ETIZOLAM
     Route: 048
     Dates: start: 20120918, end: 20140501
  3. VIVIANT [Concomitant]
     Active Substance: BAZEDOXIFENE
     Route: 048
     Dates: start: 20130416
  4. LOCOID [Concomitant]
     Active Substance: HYDROCORTISONE BUTYRATE
     Route: 062
     Dates: start: 20140804, end: 20140810
  5. ANTEBATE [Concomitant]
     Active Substance: BETAMETHASONE DIPROPIONATE
     Route: 062
     Dates: start: 20140609, end: 20140615
  6. NOVOLIN 30R [Concomitant]
     Active Substance: INSULIN HUMAN
     Indication: DIABETES MELLITUS
     Route: 065
     Dates: start: 20111027, end: 20111211
  7. HUMALOG MIX [Concomitant]
     Active Substance: INSULIN LISPRO
     Indication: DIABETES MELLITUS
     Route: 065
     Dates: start: 20130904, end: 20140520
  8. NAUZELIN [Concomitant]
     Active Substance: DOMPERIDONE
     Route: 048
     Dates: end: 2013
  9. DIOVAN [Concomitant]
     Active Substance: VALSARTAN
     Indication: HYPERTENSION
     Route: 065
     Dates: start: 20130416, end: 20131115
  10. PAXIL [Concomitant]
     Active Substance: PAROXETINE HYDROCHLORIDE
     Route: 048
     Dates: start: 20131227
  11. ZYLORIC [Concomitant]
     Active Substance: ALLOPURINOL
     Route: 065
     Dates: start: 20140208
  12. LOCOID [Concomitant]
     Active Substance: HYDROCORTISONE BUTYRATE
     Route: 062
     Dates: start: 20140609, end: 20140615
  13. ANTEBATE [Concomitant]
     Active Substance: BETAMETHASONE DIPROPIONATE
     Route: 062
     Dates: start: 20140804, end: 20140810
  14. NOVOLIN 30R [Concomitant]
     Active Substance: INSULIN HUMAN
     Indication: DIABETES MELLITUS
     Route: 065
     Dates: start: 20110310, end: 20111026
  15. JANUVIA [Concomitant]
     Active Substance: SITAGLIPTIN PHOSPHATE
     Indication: DIABETES MELLITUS
     Route: 065
     Dates: start: 20120528
  16. NORVASC [Concomitant]
     Active Substance: AMLODIPINE BESYLATE
     Indication: HYPERTENSION
     Route: 065
     Dates: start: 2004, end: 20120917
  17. NORVASC [Concomitant]
     Active Substance: AMLODIPINE BESYLATE
     Indication: HYPERTENSION
     Route: 065
     Dates: start: 20120918, end: 20130415
  18. NORVASC [Concomitant]
     Active Substance: AMLODIPINE BESYLATE
     Indication: HYPERTENSION
     Route: 065
     Dates: start: 20130416, end: 20131115
  19. MOHRUS TAPE [Concomitant]
     Active Substance: KETOPROFEN
     Dosage: TAPE
     Route: 062
     Dates: start: 20120918
  20. HYDROCHLOROTHIAZIDE. [Concomitant]
     Active Substance: HYDROCHLOROTHIAZIDE
     Indication: HYPERTENSION
     Route: 065
     Dates: start: 20130416, end: 20131115
  21. CARDENALIN [Concomitant]
     Active Substance: DOXAZOSIN MESYLATE
     Indication: HYPERTENSION
     Route: 065
     Dates: start: 20140208, end: 20140501
  22. BESOFTEN [Concomitant]
     Active Substance: SODIUM ALGINATE
     Route: 062
     Dates: start: 20140609, end: 20140615
  23. CRESTOR [Suspect]
     Active Substance: ROSUVASTATIN CALCIUM
     Indication: HYPERCHOLESTEROLAEMIA
     Dosage: AFTER EVENING MEAL
     Route: 048
     Dates: start: 20110901, end: 20150123
  24. HUMALOG MIX [Concomitant]
     Active Substance: INSULIN LISPRO
     Indication: DIABETES MELLITUS
     Route: 065
     Dates: start: 20130130, end: 20130903
  25. HUMALOG MIX [Concomitant]
     Active Substance: INSULIN LISPRO
     Indication: DIABETES MELLITUS
     Route: 065
     Dates: start: 20140917
  26. NORVASC [Concomitant]
     Active Substance: AMLODIPINE BESYLATE
     Indication: HYPERTENSION
     Route: 065
     Dates: start: 20140607, end: 20141003
  27. CARDENALIN [Concomitant]
     Active Substance: DOXAZOSIN MESYLATE
     Indication: HYPERTENSION
     Route: 065
     Dates: start: 20131116, end: 20140207
  28. EXFORGE [Concomitant]
     Active Substance: AMLODIPINE BESYLATE\VALSARTAN
     Indication: HYPERTENSION
     Route: 065
     Dates: start: 20131116, end: 20140606
  29. BESOFTEN [Concomitant]
     Active Substance: SODIUM ALGINATE
     Route: 062
     Dates: start: 20140804, end: 20140810
  30. PASTARON [Concomitant]
     Active Substance: UREA
     Route: 062
     Dates: start: 20140804, end: 20140810
  31. CARDENALIN [Concomitant]
     Active Substance: DOXAZOSIN MESYLATE
     Indication: HYPERTENSION
     Route: 065
     Dates: start: 20140607, end: 20140620
  32. DIOVAN [Concomitant]
     Active Substance: VALSARTAN
     Indication: HYPERTENSION
     Route: 065
     Dates: start: 20140607, end: 20140717
  33. NOVOLIN 30R [Concomitant]
     Active Substance: INSULIN HUMAN
     Indication: DIABETES MELLITUS
     Route: 065
     Dates: start: 20111212, end: 20120702
  34. HUMALOG MIX [Concomitant]
     Active Substance: INSULIN LISPRO
     Indication: DIABETES MELLITUS
     Route: 065
     Dates: start: 20140521, end: 20140916
  35. NORVASC [Concomitant]
     Active Substance: AMLODIPINE BESYLATE
     Indication: HYPERTENSION
     Route: 065
     Dates: start: 20141004
  36. CARDENALIN [Concomitant]
     Active Substance: DOXAZOSIN MESYLATE
     Indication: HYPERTENSION
     Route: 065
     Dates: start: 20140621
  37. BLOPRESS [Concomitant]
     Active Substance: CANDESARTAN CILEXETIL
     Indication: HYPERTENSION
     Route: 065
     Dates: end: 20130415
  38. NORVASC [Concomitant]
     Active Substance: AMLODIPINE BESYLATE
     Indication: HYPERTENSION
     Route: 065
     Dates: start: 20131116, end: 20140320
  39. DEPAS [Concomitant]
     Active Substance: ETIZOLAM
     Route: 065
     Dates: start: 20140502
  40. CARDENALIN [Concomitant]
     Active Substance: DOXAZOSIN MESYLATE
     Indication: HYPERTENSION
     Route: 065
     Dates: start: 20140502, end: 20140606
  41. RANITIDINE [Concomitant]
     Active Substance: RANITIDINE\RANITIDINE HYDROCHLORIDE
     Route: 048
     Dates: start: 20130416
  42. SENNA [Concomitant]
     Active Substance: SENNA LEAF\SENNOSIDES\SENNOSIDES A AND B
     Route: 048
     Dates: start: 20141024
  43. EUGLUCON [Concomitant]
     Active Substance: GLYBURIDE
     Indication: DIABETES MELLITUS
     Route: 065
     Dates: start: 20090813, end: 20120527
  44. CARDENALIN [Concomitant]
     Active Substance: DOXAZOSIN MESYLATE
     Indication: HYPERTENSION
     Route: 065
     Dates: start: 20130416, end: 20131115
  45. LASIX [Concomitant]
     Active Substance: FUROSEMIDE
     Indication: HYPERTENSION
     Route: 065
     Dates: start: 20140523, end: 20140527
  46. EBASTEL [Concomitant]
     Active Substance: EBASTINE
     Route: 048
     Dates: start: 20140609, end: 20140615
  47. EBASTEL [Concomitant]
     Active Substance: EBASTINE
     Route: 048
     Dates: start: 20140804, end: 20140810

REACTIONS (3)
  - Colon cancer [Fatal]
  - Cervicobrachial syndrome [Unknown]
  - Anxiety disorder [Unknown]

NARRATIVE: CASE EVENT DATE: 20120918
